FAERS Safety Report 7936187-3 (Version None)
Quarter: 2011Q4

REPORT INFORMATION
  Report Type: 
  Country: None (occurrence: None)
  Receive Date: 20111123
  Receipt Date: 20111118
  Transmission Date: 20120403
  Serious: Yes (Other)
  Sender: FDA-Public Use
  Company Number: HU-PFIZER INC-2011285176

PATIENT
  Age: 59 Year
  Sex: Female
  Weight: 81 kg

DRUGS (6)
  1. PANTOPRAZOLE [Concomitant]
     Dosage: UNK
  2. ATORVASTATIN CALCIUM [Suspect]
     Dosage: 1X1 DAILY
     Dates: start: 20110301, end: 20110401
  3. METFORMIN HCL [Concomitant]
     Dosage: UNK
  4. LISONORM [Concomitant]
     Dosage: UNK
  5. SERTAN [Concomitant]
     Dosage: UNK
  6. TENSIOMIN [Concomitant]
     Dosage: UNK

REACTIONS (5)
  - HYPOAESTHESIA [None]
  - HAEMATEMESIS [None]
  - PAIN [None]
  - ABDOMINAL PAIN [None]
  - DIARRHOEA [None]
